FAERS Safety Report 25720060 (Version 1)
Quarter: 2025Q3

REPORT INFORMATION
  Report Type: Spontaneous
  Country: JP (occurrence: JP)
  Receive Date: 20250825
  Receipt Date: 20250825
  Transmission Date: 20251021
  Serious: Yes (Death)
  Sender: MERCK SHARP & DOHME LLC
  Company Number: JP-009507513-2258594

PATIENT
  Age: 84 Year
  Sex: Male

DRUGS (1)
  1. KEYTRUDA [Suspect]
     Active Substance: PEMBROLIZUMAB
     Indication: Lung adenocarcinoma stage IV
     Dosage: 200 MG X 1 TIME EVERY 3 WEEKS.
     Route: 041
     Dates: start: 202406

REACTIONS (3)
  - Cytokine release syndrome [Fatal]
  - Haemophagocytic lymphohistiocytosis [Fatal]
  - Rash [Fatal]

NARRATIVE: CASE EVENT DATE: 20241101
